FAERS Safety Report 9230917 (Version 1)
Quarter: 2013Q1

REPORT INFORMATION
  Report Type: Spontaneous
  Country: US (occurrence: None)
  Receive Date: 20121031
  Receipt Date: 20121031
  Transmission Date: 20140127
  Serious: No
  Sender: FDA-Public Use
  Company Number: PHEH2012US011486

PATIENT
  Sex: Male
  Weight: 81.6 kg

DRUGS (3)
  1. GILENYA (FTY) CAPSULE, 0.5MG [Suspect]
     Route: 048
  2. CYMBALTA (DULOXETINE HYDROCHLORIDE) [Concomitant]
  3. PROBIOTICA (LACTOBACILLUS REUTERI) [Concomitant]

REACTIONS (4)
  - Nausea [None]
  - Dizziness [None]
  - Asthenia [None]
  - Heart rate decreased [None]
